FAERS Safety Report 5682817-9 (Version None)
Quarter: 2008Q1

REPORT INFORMATION
  Report Type: 
  Country: None (occurrence: None)
  Receive Date: 20080327
  Receipt Date: 20080319
  Transmission Date: 20080703
  Serious: Yes (Other)
  Sender: FDA-Public Use
  Company Number: A0701741A

PATIENT
  Age: 40 Year
  Sex: Male
  Weight: 78.2 kg

DRUGS (1)
  1. MALARONE [Suspect]
     Indication: MALARIA PROPHYLAXIS
     Route: 048
     Dates: start: 20071213, end: 20071219

REACTIONS (3)
  - ANOREXIA [None]
  - NAUSEA [None]
  - PANIC ATTACK [None]
